FAERS Safety Report 10248421 (Version 2)
Quarter: 2014Q3

REPORT INFORMATION
  Report Type: Spontaneous
  Country: US (occurrence: US)
  Receive Date: 20140620
  Receipt Date: 20140721
  Transmission Date: 20150326
  Serious: No
  Sender: FDA-Public Use
  Company Number: US-BIOGENIDEC-2014BI058180

PATIENT
  Age: 24 Year
  Sex: Female

DRUGS (4)
  1. CLONAZEPAM. [Concomitant]
     Active Substance: CLONAZEPAM
  2. TYSABRI [Suspect]
     Active Substance: NATALIZUMAB
     Indication: MULTIPLE SCLEROSIS
     Route: 042
     Dates: start: 20140331, end: 20140605
  3. VITAMIN D [Concomitant]
     Active Substance: CHOLECALCIFEROL
  4. GABEPENTIN [Concomitant]

REACTIONS (4)
  - Drug specific antibody present [Not Recovered/Not Resolved]
  - Chest pain [Recovered/Resolved]
  - Pruritus allergic [Recovered/Resolved]
  - Erythema [Recovered/Resolved]

NARRATIVE: CASE EVENT DATE: 20140331
